FAERS Safety Report 6732362-4 (Version None)
Quarter: 2010Q2

REPORT INFORMATION
  Report Type: 
  Country: None (occurrence: None)
  Receive Date: 20100519
  Receipt Date: 20100513
  Transmission Date: 20101027
  Serious: Yes (Life-Threatening, Hospitalization)
  Sender: FDA-Public Use
  Company Number: JP-ROCHE-575719

PATIENT
  Sex: Female
  Weight: 43 kg

DRUGS (19)
  1. TOCILIZUMAB [Suspect]
     Indication: JUVENILE ARTHRITIS
     Route: 041
     Dates: start: 20080628, end: 20080628
  2. TOCILIZUMAB [Suspect]
     Route: 041
     Dates: start: 20080724, end: 20080724
  3. TOCILIZUMAB [Suspect]
     Route: 041
     Dates: start: 20080830, end: 20080830
  4. TOCILIZUMAB [Suspect]
     Route: 041
     Dates: start: 20080920, end: 20080920
  5. TOCILIZUMAB [Suspect]
     Route: 041
     Dates: start: 20081010, end: 20081010
  6. TOCILIZUMAB [Suspect]
     Route: 041
     Dates: start: 20081101, end: 20081101
  7. TOCILIZUMAB [Suspect]
     Route: 041
     Dates: start: 20081122, end: 20081122
  8. TOCILIZUMAB [Suspect]
     Route: 041
     Dates: start: 20081220
  9. PREDONINE [Concomitant]
     Route: 048
     Dates: start: 20031104, end: 20080725
  10. PREDONINE [Concomitant]
     Route: 048
     Dates: start: 20080801, end: 20080804
  11. PREDONINE [Concomitant]
     Route: 048
     Dates: start: 20080805, end: 20080811
  12. PREDONINE [Concomitant]
     Route: 048
     Dates: start: 20080812, end: 20080827
  13. PREDONINE [Concomitant]
     Route: 048
     Dates: start: 20080830, end: 20081031
  14. PREDONINE [Concomitant]
     Route: 048
     Dates: start: 20081101, end: 20081219
  15. PREDONINE [Concomitant]
     Route: 048
     Dates: start: 20081220
  16. ENBREL [Concomitant]
     Route: 058
     Dates: start: 20080714
  17. RHEUMATREX [Concomitant]
     Dosage: NOTE: MTX+RTX (13 MG)
     Route: 048
     Dates: start: 20080715
  18. METHOTREXATE [Concomitant]
     Dosage: NOTE: MTX+RTX (13 MG)
     Route: 048
     Dates: start: 20080715
  19. NEORAL [Concomitant]
     Route: 048
     Dates: start: 20080720

REACTIONS (4)
  - DISSEMINATED INTRAVASCULAR COAGULATION [None]
  - ENTERITIS INFECTIOUS [None]
  - MULTI-ORGAN FAILURE [None]
  - SEPTIC SHOCK [None]
